FAERS Safety Report 7423816-6 (Version None)
Quarter: 2011Q2

REPORT INFORMATION
  Report Type: 
  Country: None (occurrence: None)
  Receive Date: 20110419
  Receipt Date: 20110408
  Transmission Date: 20111010
  Serious: Yes (Hospitalization)
  Sender: FDA-Public Use
  Company Number: PHHY2011CH25393

PATIENT
  Sex: Female

DRUGS (9)
  1. ZALDIAR [Concomitant]
     Dosage: UNK
  2. SALAMOL (SALBUTAMOL SULFATE) [Concomitant]
     Dosage: 100 UNK, PRN
  3. GILENYA [Suspect]
     Indication: SECONDARY PROGRESSIVE MULTIPLE SCLEROSIS
     Dosage: 0.5 MG, UNK
     Route: 048
     Dates: start: 20110310, end: 20110314
  4. VESICARE [Concomitant]
     Dosage: 20 MG, UNK
  5. SIRDALUD [Concomitant]
     Dosage: 12 MG, DAILY
  6. MAGNESIOCARD [Concomitant]
     Dosage: 10 MMOL, UNK
  7. CARMELLOSE SODIUM [Concomitant]
     Dosage: UNK
  8. LACRINORM [Concomitant]
     Dosage: UNK
  9. TRANSIPED FORTE [Concomitant]
     Dosage: 1 DF, UNK

REACTIONS (10)
  - DYSPHAGIA [None]
  - MYALGIA [None]
  - PAIN IN EXTREMITY [None]
  - OROPHARYNGEAL SPASM [None]
  - LYMPHOPENIA [None]
  - STRIDOR [None]
  - TORTICOLLIS [None]
  - NECK PAIN [None]
  - DYSPNOEA [None]
  - BACK PAIN [None]
